FAERS Safety Report 12235864 (Version 1)
Quarter: 2016Q2

REPORT INFORMATION
  Report Type: Report from Study
  Country: MX (occurrence: MX)
  Receive Date: 20160404
  Receipt Date: 20160404
  Transmission Date: 20160815
  Serious: Yes (Other)
  Sender: FDA-Public Use
  Company Number: MX-EMD SERONO-7222884

PATIENT
  Sex: Male
  Weight: 62 kg

DRUGS (6)
  1. GLIBENCLAMIDE [Concomitant]
     Active Substance: GLYBURIDE
     Indication: DIABETES MELLITUS
  2. SPIRONOLACTONE. [Concomitant]
     Active Substance: SPIRONOLACTONE
     Indication: CARDIAC DISORDER
  3. SAIZEN [Suspect]
     Active Substance: SOMATROPIN
     Indication: LEFT VENTRICULAR DYSFUNCTION
     Dosage: 0.05 (UNSPECIFIED UNITS)
     Route: 058
     Dates: start: 20121101, end: 20130101
  4. INSULIN [Concomitant]
     Active Substance: INSULIN NOS
     Indication: DIABETES MELLITUS
  5. AMIODARONE [Concomitant]
     Active Substance: AMIODARONE
     Indication: CARDIAC DISORDER
  6. SAIZEN [Suspect]
     Active Substance: SOMATROPIN
     Indication: CARDIAC DISORDER

REACTIONS (1)
  - Diverticulum intestinal haemorrhagic [Unknown]
